FAERS Safety Report 9056894 (Version 1)
Quarter: 2013Q1

REPORT INFORMATION
  Report Type: Report from Study
  Country: US (occurrence: US)
  Receive Date: 20130201
  Receipt Date: 20130201
  Transmission Date: 20140127
  Serious: Yes (Other)
  Sender: FDA-Public Use
  Company Number: US-ACTELION-A-NJ2013-78693

PATIENT
  Age: 60 Year
  Sex: Female

DRUGS (16)
  1. TRACLEER [Suspect]
     Indication: PULMONARY ARTERIAL HYPERTENSION
     Dosage: 125 MG, BID
     Route: 048
     Dates: start: 200809
  2. SINGULAR [Concomitant]
     Dosage: 10 MG, QD
     Dates: start: 1991
  3. ALDACTONE [Concomitant]
     Dosage: 100 MG, BID
     Dates: start: 1991
  4. LASIX [Concomitant]
     Dosage: 60 MG, BID
     Dates: start: 1991
  5. POTASSIUM [Concomitant]
     Dosage: 20 MEQ, BID
     Dates: start: 1991
  6. PREDNISONE [Concomitant]
     Dosage: 20 MG, QD
     Dates: start: 1991
  7. PRAVASTATIN [Concomitant]
     Dosage: 40 MG, QD
  8. CELEXA [Concomitant]
     Dosage: 10 MG, BID
  9. FLEXERIL [Concomitant]
     Dosage: 10 MG, QD
  10. OXYCODONE [Concomitant]
     Dosage: 30 MG, 5 X DAY
  11. LEVOTHYROXINE [Concomitant]
     Dosage: 75 MCG, QD
  12. PRILOSEC [Concomitant]
     Dosage: 20 MG, QD
  13. IRON [Concomitant]
     Dosage: 325 MG, BID
  14. VITAMIN D [Concomitant]
     Dosage: 3000 UNK, QD
  15. AMITRIPTYLINE [Concomitant]
     Dosage: 10 MG, QD
  16. REGLAN [Concomitant]
     Dosage: 5 MG, PRN

REACTIONS (4)
  - Diabetes mellitus [Not Recovered/Not Resolved]
  - Gout [Not Recovered/Not Resolved]
  - Anxiety [Not Recovered/Not Resolved]
  - Pulmonary hypertension [None]
